APPROVED DRUG PRODUCT: DSUVIA
Active Ingredient: SUFENTANIL CITRATE
Strength: EQ 0.03MG BASE
Dosage Form/Route: TABLET;SUBLINGUAL
Application: N209128 | Product #001
Applicant: VERTICAL PHARMACEUTICALS LLC
Approved: Nov 2, 2018 | RLD: Yes | RS: No | Type: DISCN

PATENTS:
Patent 8778393 | Expires: Jan 5, 2027
Patent 9320710 | Expires: Jan 5, 2027
Patent 8202535 | Expires: Oct 22, 2030
Patent 8226978 | Expires: Jan 5, 2027
Patent 8865743 | Expires: Oct 22, 2030
Patent 8865211 | Expires: Jan 5, 2027
Patent 10245228 | Expires: Jan 5, 2027
Patent 10507180 | Expires: Jan 5, 2027
Patent 8535714 | Expires: Jan 5, 2027
Patent 8778394 | Expires: Jan 5, 2027
Patent 11672738 | Expires: Feb 2, 2038
Patent 9744129 | Expires: Jan 5, 2027
Patent 8945592 | Expires: Jul 29, 2031
Patent 8252329 | Expires: Jan 5, 2027
Patent 12033733 | Expires: Mar 16, 2030
Patent 10896751 | Expires: Mar 16, 2030
Patent 10342762 | Expires: Jan 5, 2027
Patent 8574189 | Expires: Mar 16, 2030
Patent 8252328 | Expires: Jan 5, 2027
Patent 11676691 | Expires: Mar 16, 2030
Patent 8231900 | Expires: Jan 5, 2027